FAERS Safety Report 9989146 (Version 2)
Quarter: 2014Q1

REPORT INFORMATION
  Report Type: Spontaneous
  Country: JP (occurrence: JP)
  Receive Date: 20140310
  Receipt Date: 20140324
  Transmission Date: 20141002
  Serious: Yes (Hospitalization)
  Sender: FDA-Public Use
  Company Number: JP-009507513-1403JPN000185

PATIENT
  Age: 31 Year
  Sex: Female

DRUGS (1)
  1. MARVELON [Suspect]
     Indication: PREMENSTRUAL SYNDROME
     Dosage: 1 DF, QD
     Route: 048
     Dates: start: 20140125, end: 201402

REACTIONS (1)
  - Deep vein thrombosis [Recovering/Resolving]
